FAERS Safety Report 9192729 (Version 1)
Quarter: 2013Q1

REPORT INFORMATION
  Report Type: Spontaneous
  Country: US (occurrence: None)
  Receive Date: 20120703
  Receipt Date: 20120703
  Transmission Date: 20140127
  Serious: No
  Sender: FDA-Public Use
  Company Number: PHEH2012US009220

PATIENT
  Age: 54 Year
  Sex: Female

DRUGS (5)
  1. GILENYA [Suspect]
     Indication: MULTIPLE SCLEROSIS
     Route: 048
     Dates: start: 20120427
  2. CITALOPRAM(CITALOPRAM) [Concomitant]
  3. BACLOFEN (BACLOFEN) [Concomitant]
  4. PRINIVIL (LISINOPRIL) [Concomitant]
  5. OXYBUTANE [Concomitant]

REACTIONS (2)
  - Somnolence [None]
  - Dyspnoea [None]
